FAERS Safety Report 8436299-4 (Version None)
Quarter: 2012Q2

REPORT INFORMATION
  Report Type: 
  Country: None (occurrence: None)
  Receive Date: 20120614
  Receipt Date: 20120605
  Transmission Date: 20120825
  Serious: Yes (Hospitalization)
  Sender: FDA-Public Use
  Company Number: SE-B.I. PHARMACEUTICALS,INC./RIDGEFIELD-2012-RD-00195EU

PATIENT
  Sex: Male
  Weight: 75.4 kg

DRUGS (1)
  1. BI 1356 [Suspect]
     Indication: TYPE 2 DIABETES MELLITUS
     Route: 048
     Dates: start: 20110303, end: 20120221

REACTIONS (3)
  - URINARY TRACT INFECTION [None]
  - HYDRONEPHROSIS [None]
  - PERIRENAL HAEMATOMA [None]
